FAERS Safety Report 9042161 (Version 1)
Quarter: 2013Q1

REPORT INFORMATION
  Report Type: Report from Study
  Country: US (occurrence: US)
  Receive Date: 20130129
  Receipt Date: 20130129
  Transmission Date: 20140127
  Serious: Yes (Hospitalization)
  Sender: FDA-Public Use
  Company Number: US-ABBOTT-12P-163-0904819-00

PATIENT
  Sex: Male
  Weight: 104.42 kg

DRUGS (8)
  1. HUMIRA 40 MG/0.8 ML PEN [Suspect]
     Indication: ANKYLOSING SPONDYLITIS
     Dates: start: 2007, end: 201011
  2. HUMIRA 40 MG/0.8 ML PEN [Suspect]
     Dates: start: 201201
  3. OXYCODONE [Concomitant]
     Indication: PAIN
  4. DIAZIDE [Concomitant]
     Indication: FLUID RETENTION
  5. ALTACE [Concomitant]
     Indication: HYPERTENSION
  6. COREG [Concomitant]
     Indication: HYPERTENSION
  7. CLONIDINE [Concomitant]
     Indication: HYPERTENSION
  8. COLCHICINE [Concomitant]
     Indication: GOUT

REACTIONS (1)
  - Back pain [Recovering/Resolving]
